FAERS Safety Report 10995602 (Version 2)
Quarter: 2015Q2

REPORT INFORMATION
  Report Type: Spontaneous
  Country: AU (occurrence: AU)
  Receive Date: 20150407
  Receipt Date: 20150420
  Transmission Date: 20150821
  Serious: Yes (Hospitalization, Other)
  Sender: FDA-Public Use
  Company Number: AU-MUNDIPHARMA DS AND PHARMACOVIGILANCE-GBR-2014-0021149

PATIENT
  Age: 50 Year
  Sex: Female

DRUGS (24)
  1. PREGABALIN. [Concomitant]
     Active Substance: PREGABALIN
     Dosage: 150 MG, DAILY
     Dates: start: 20141021
  2. DIAZEPAM. [Concomitant]
     Active Substance: DIAZEPAM
     Dosage: 10 MG, NOCTE
     Dates: end: 20141022
  3. COLOXYL WITH SENNA [Concomitant]
     Active Substance: DOCUSATE\SENNOSIDES
     Dosage: 2 UNK, BID
  4. DULOXETINE [Concomitant]
     Active Substance: DULOXETINE
     Dosage: 60 MG, NOCTE
  5. NILSTAT                            /00036501/ [Concomitant]
     Dosage: 1 UNK, QID
  6. TARGIN [Suspect]
     Active Substance: NALOXONE HYDROCHLORIDE\OXYCODONE HYDROCHLORIDE
     Indication: PAIN
     Dosage: 60/30 MG, BID
     Route: 048
     Dates: end: 20141020
  7. MOVICOL [Concomitant]
     Active Substance: POLYETHYLENE GLYCOL 3350\POTASSIUM CHLORIDE\SODIUM BICARBONATE\SODIUM CHLORIDE
     Dosage: 1 UNK, NOCTE
  8. HYDROMORPHONE HCL INJECTABLE [Suspect]
     Active Substance: HYDROMORPHONE
     Indication: PAIN
     Dosage: 1 MG, Q4H
     Route: 058
     Dates: start: 20141024
  9. METOCLOPRAMIDE. [Concomitant]
     Active Substance: METOCLOPRAMIDE
     Dosage: 10 MG, TID
  10. MORPHINE SULFATE. [Suspect]
     Active Substance: MORPHINE SULFATE
     Dosage: 15 MG, Q4H
     Route: 058
     Dates: start: 20141020, end: 201410
  11. OXAZEPAM. [Concomitant]
     Active Substance: OXAZEPAM
     Dosage: 30 MG, NOCTE
  12. CHOLECALCIFEROL [Concomitant]
     Active Substance: CHOLECALCIFEROL
     Dosage: 1000 IU, DAILY
  13. SPIRIVA [Concomitant]
     Active Substance: TIOTROPIUM BROMIDE MONOHYDRATE
     Dosage: 18 MCG, DAILY
  14. FENTANYL. [Concomitant]
     Active Substance: FENTANYL
     Indication: PAIN
     Dosage: 25 MCG, HS
  15. PREGABALIN. [Concomitant]
     Active Substance: PREGABALIN
     Indication: PAIN
     Dosage: 75 MG, BID
  16. NICOTINE. [Concomitant]
     Active Substance: NICOTINE
     Dosage: 21 MG, NOCTE
     Route: 062
  17. OXAZEPAM. [Concomitant]
     Active Substance: OXAZEPAM
     Dosage: 15 MG, NOCTE
     Dates: start: 20141022
  18. ESOMEPRAZOLE [Concomitant]
     Active Substance: ESOMEPRAZOLE
     Dosage: 40 MG, BID
  19. METOCLOPRAMIDE. [Concomitant]
     Active Substance: METOCLOPRAMIDE
     Dosage: 20 MG, TID
     Dates: start: 20141023
  20. MORPHINE SULFATE. [Suspect]
     Active Substance: MORPHINE SULFATE
     Indication: PAIN
     Dosage: 10 MG, Q4H
     Route: 058
     Dates: start: 20141021
  21. GABAPENTIN. [Concomitant]
     Active Substance: GABAPENTIN
     Dosage: 300 MG, TID
  22. SERETIDE [Concomitant]
     Active Substance: FLUTICASONE FUROATE\SALMETEROL XINAFOATE
     Dosage: 250/25 MCG, 1 PUFF, BID
  23. PARACETAMOL [Concomitant]
     Active Substance: ACETAMINOPHEN
     Dosage: 1 G, QID
  24. HYDROMORPHONE HCL INJECTABLE [Suspect]
     Active Substance: HYDROMORPHONE
     Dosage: 1.5 MG, Q4H
     Route: 058
     Dates: start: 201410

REACTIONS (8)
  - Metastases to liver [Unknown]
  - Drug ineffective [Recovered/Resolved]
  - Somnolence [Recovered/Resolved]
  - Toxicity to various agents [Recovered/Resolved]
  - Liver function test abnormal [Unknown]
  - Incorrect dosage administered [Recovered/Resolved]
  - Haematuria [Unknown]
  - Urinary tract infection [Unknown]

NARRATIVE: CASE EVENT DATE: 20141021
